FAERS Safety Report 7233285-7 (Version None)
Quarter: 2011Q1

REPORT INFORMATION
  Report Type: 
  Country: None (occurrence: None)
  Receive Date: 20110119
  Receipt Date: 20110111
  Transmission Date: 20110831
  Serious: Yes (Other)
  Sender: FDA-Public Use
  Company Number: GR-ASTRAZENECA-2011SE01451

PATIENT
  Age: 31 Year
  Sex: Female
  Weight: 60 kg

DRUGS (3)
  1. NORMAL 0.9% [Concomitant]
     Route: 008
  2. NAROPIN [Suspect]
     Indication: EPIDURAL ANAESTHESIA
     Dosage: 3ML (22.5MG)
     Route: 008
     Dates: start: 20101206, end: 20101206
  3. FENTANYL [Concomitant]
     Route: 008

REACTIONS (1)
  - MOTOR DYSFUNCTION [None]
